FAERS Safety Report 8919475 (Version 2)
Quarter: 2013Q1

REPORT INFORMATION
  Report Type: Report from Study
  Country: JP (occurrence: JP)
  Receive Date: 20121121
  Receipt Date: 20130325
  Transmission Date: 20140127
  Serious: Yes (Hospitalization, Other)
  Sender: FDA-Public Use
  Company Number: JP-SHIRE-ALL1-2012-05699

PATIENT
  Age: 38 Year
  Sex: Female

DRUGS (14)
  1. 405 (LANTHANUM CARBONATE) [Suspect]
     Indication: HYPERPHOSPHATAEMIA
     Dosage: 750 MG, UNKNOWN (IMMEDIATELY AFTER MEALS)
     Route: 048
     Dates: start: 20090501, end: 20100413
  2. 405 (LANTHANUM CARBONATE) [Suspect]
     Dosage: 250 MG, UNKNOWN (IMMEDIATELY AFTER MEALS)
     Route: 048
     Dates: start: 20100915, end: 20101013
  3. 405 (LANTHANUM CARBONATE) [Suspect]
     Dosage: 750 MG, UNKNOWN (IMMEDIATELY AFTER MEALS)
     Route: 048
     Dates: start: 20101013, end: 20110105
  4. 405 (LANTHANUM CARBONATE) [Suspect]
     Dosage: 1500 MG, UNKNOWN (IMMEDIATELY FOLLOWING MEALS)
     Route: 048
     Dates: start: 20110105, end: 20110427
  5. 405 (LANTHANUM CARBONATE) [Suspect]
     Dosage: 2250 MG, UNKNOWN (IMMEDIATELY FOLLOWING MEALS)
     Route: 048
     Dates: start: 20110427, end: 20111206
  6. 405 (LANTHANUM CARBONATE) [Suspect]
     Dosage: 1500 MG, UNKNOWN (IMMEDIATLEY FOLLOWING MEALS)
     Route: 048
     Dates: start: 20111207, end: 20110402
  7. CALTAN [Concomitant]
     Indication: HYPERPHOSPHATAEMIA
     Dosage: 1500 MG, UNKNOWN
     Route: 048
  8. MUCOSTA [Concomitant]
     Indication: PRODUCT USED FOR UNKNOWN INDICATION
     Dosage: 200 MG, UNKNOWN
     Route: 048
  9. BIOFERMIN                          /01617201/ [Concomitant]
     Indication: PRODUCT USED FOR UNKNOWN INDICATION
     Dosage: 36 MG, UNKNOWN
     Route: 048
  10. RISUMIC [Concomitant]
     Indication: PRODUCT USED FOR UNKNOWN INDICATION
     Dosage: 20 MG, UNKNOWN
     Route: 048
  11. VOLTAREN-XR [Concomitant]
     Indication: PRODUCT USED FOR UNKNOWN INDICATION
     Dosage: 37.5 MG, UNKNOWN
     Route: 048
  12. VOLTAREN-XR [Concomitant]
     Dosage: 37.5 MG, UNKNOWN
     Route: 048
     Dates: start: 20101215, end: 20101221
  13. LASIX                              /00032601/ [Concomitant]
     Indication: PRODUCT USED FOR UNKNOWN INDICATION
     Dosage: 80 MG, UNKNOWN
     Route: 048
  14. NOVORAPID [Concomitant]
     Indication: PRODUCT USED FOR UNKNOWN INDICATION
     Dosage: 9 IU, UNKNOWN
     Route: 058

REACTIONS (2)
  - Loss of consciousness [Recovered/Resolved]
  - Renal failure [Unknown]
